FAERS Safety Report 10334030 (Version 1)
Quarter: 2014Q3

REPORT INFORMATION
  Report Type: Spontaneous
  Country: US (occurrence: None)
  Receive Date: 20140721
  Receipt Date: 20140721
  Transmission Date: 20150326
  Serious: Yes (Hospitalization)
  Sender: FDA-Public Use
  Company Number: None

PATIENT
  Age: 61 Year
  Sex: Female
  Weight: 53.52 kg

DRUGS (1)
  1. TRAMADOL [Suspect]
     Active Substance: TRAMADOL
     Indication: PROCEDURAL PAIN
     Dosage: 50MG, Q/4HRS, AT BEDTIME, ORAL
     Route: 048
     Dates: start: 20131231, end: 20140706

REACTIONS (3)
  - Presyncope [None]
  - Hypertension [None]
  - Blindness transient [None]

NARRATIVE: CASE EVENT DATE: 20140706
